FAERS Safety Report 4446175-X (Version None)
Quarter: 2004Q3

REPORT INFORMATION
  Report Type: 
  Country: None (occurrence: None)
  Receive Date: 20040903
  Receipt Date: 20040824
  Transmission Date: 20050211
  Serious: Yes (Death)
  Sender: FDA-Public Use
  Company Number: 2004-DE-04500GD

PATIENT
  Age: 52 Year
  Sex: Male

DRUGS (8)
  1. DIPYRIDAMOLE [Suspect]
     Indication: ARTERIAL OCCLUSIVE DISEASE
     Dosage: 225 MG, THREE TIMES PER DAY
  2. CYTARABINE [Suspect]
     Indication: ACUTE MYELOID LEUKAEMIA
     Dosage: 100 MG/M2
  3. AMIKACIN [Suspect]
     Indication: FEBRILE NEUTROPENIA
     Dosage: 1 G
  4. CEFEFIME (CEFEFIME) [Suspect]
     Indication: FEBRILE NEUTROPENIA
     Dosage: 4 G
  5. IDARUBICIN HCL [Concomitant]
  6. ONDANSETRON HCL [Concomitant]
  7. BENCYCLAN HYDROGEN FUMARATE (BENCYCLANE FUMARATE) [Concomitant]
  8. DEXTRAN (DEXTRAN) [Concomitant]

REACTIONS (11)
  - ACUTE MYELOID LEUKAEMIA RECURRENT [None]
  - ARTERIAL OCCLUSIVE DISEASE [None]
  - BLOOD BILIRUBIN INCREASED [None]
  - DRUG INTERACTION [None]
  - DYSPNOEA [None]
  - FEBRILE NEUTROPENIA [None]
  - HEPATIC FUNCTION ABNORMAL [None]
  - HEPATOTOXICITY [None]
  - MULTI-ORGAN FAILURE [None]
  - PAIN IN EXTREMITY [None]
  - SEPSIS [None]
